FAERS Safety Report 5451330-6 (Version None)
Quarter: 2007Q3

REPORT INFORMATION
  Report Type: 
  Country: None (occurrence: None)
  Receive Date: 20070911
  Receipt Date: 20070911
  Transmission Date: 20080115
  Serious: Yes (Other)
  Sender: FDA-Public Use
  Company Number: None

PATIENT
  Age: 43 Year
  Sex: Female
  Weight: 56.6996 kg

DRUGS (2)
  1. PAROXETINE [Suspect]
     Indication: DEPRESSION
     Dosage: TAKE TWO TEASPOONSFUL DAILY  PO
     Route: 048
     Dates: start: 19980110, end: 20070620
  2. PAROXETINE [Suspect]
     Indication: GENERALISED ANXIETY DISORDER
     Dosage: TAKE TWO TEASPOONSFUL DAILY  PO
     Route: 048
     Dates: start: 19980110, end: 20070620

REACTIONS (1)
  - TOOTH DISORDER [None]
